FAERS Safety Report 12386298 (Version 1)
Quarter: 2016Q2

REPORT INFORMATION
  Report Type: Report from Study
  Country: US (occurrence: US)
  Receive Date: 20160519
  Receipt Date: 20160519
  Transmission Date: 20160815
  Serious: No
  Sender: FDA-Public Use
  Company Number: US-MDT-ADR-2016-00424

PATIENT
  Age: 47 Year
  Sex: Male

DRUGS (6)
  1. BACLOFEN. [Suspect]
     Active Substance: BACLOFEN
     Dosage: 150.18MCG/DAY
     Route: 037
     Dates: end: 20140522
  2. BACLOFEN. [Suspect]
     Active Substance: BACLOFEN
     Dosage: 199.88MCG/DAY
     Route: 037
     Dates: start: 20140522
  3. DILAUDID [Suspect]
     Active Substance: HYDROMORPHONE HYDROCHLORIDE
     Dosage: 0.9994MG/DAY
     Route: 037
     Dates: start: 20140522
  4. DILAUDID [Suspect]
     Active Substance: HYDROMORPHONE HYDROCHLORIDE
     Dosage: 0.7509MG/DAY
     Route: 037
     Dates: end: 20140522
  5. BUPIVACAINE. [Suspect]
     Active Substance: BUPIVACAINE
     Dosage: 11.993MG/DAY
     Route: 037
     Dates: start: 20140522
  6. BUPIVACAINE. [Suspect]
     Active Substance: BUPIVACAINE
     Dosage: 10.062MG/DAY
     Route: 037
     Dates: end: 20140522

REACTIONS (1)
  - Medical device site pain [Not Recovered/Not Resolved]

NARRATIVE: CASE EVENT DATE: 20140522
